FAERS Safety Report 19854766 (Version 1)
Quarter: 2021Q3

REPORT INFORMATION
  Report Type: Spontaneous
  Country: US (occurrence: US)
  Receive Date: 20210917
  Receipt Date: 20210917
  Transmission Date: 20211014
  Serious: Yes (Other)
  Sender: FDA-Public Use
  Company Number: None

PATIENT
  Age: 76 Year
  Sex: Female
  Weight: 90 kg

DRUGS (22)
  1. LANSOPRAZOLE. [Concomitant]
     Active Substance: LANSOPRAZOLE
  2. MONTELUKAST [Concomitant]
     Active Substance: MONTELUKAST SODIUM
  3. RESVERATROL [Concomitant]
     Active Substance: DIETARY SUPPLEMENT\RESVERATROL
  4. FUROSEMIDE. [Concomitant]
     Active Substance: FUROSEMIDE
  5. FLOVENT HFA [Concomitant]
     Active Substance: FLUTICASONE PROPIONATE
  6. ALLOPURINOL. [Concomitant]
     Active Substance: ALLOPURINOL
  7. LEVOTHYROXINE. [Concomitant]
     Active Substance: LEVOTHYROXINE
  8. FLECAINIDE ACETATE. [Concomitant]
     Active Substance: FLECAINIDE ACETATE
  9. FAMOTIDINE. [Concomitant]
     Active Substance: FAMOTIDINE
  10. AZELASTINE. [Concomitant]
     Active Substance: AZELASTINE HYDROCHLORIDE
  11. GARLIC. [Concomitant]
     Active Substance: GARLIC
  12. BOTOX [Suspect]
     Active Substance: ONABOTULINUMTOXINA
     Indication: SPINAL PAIN
     Route: 008
     Dates: start: 20160301, end: 20190301
  13. LISINOPRIL. [Concomitant]
     Active Substance: LISINOPRIL
  14. VITAMIN D3 [Concomitant]
     Active Substance: CHOLECALCIFEROL
  15. OZEMPIC [Concomitant]
     Active Substance: SEMAGLUTIDE
  16. SPIRIVA [Concomitant]
     Active Substance: TIOTROPIUM BROMIDE MONOHYDRATE
  17. LEVALBUTEROL RESCUE INHALER [Concomitant]
  18. BIOTIN [Concomitant]
     Active Substance: BIOTIN
  19. ROSUVASTATIN. [Concomitant]
     Active Substance: ROSUVASTATIN
  20. COENZYME Q?10 [Concomitant]
  21. TURMERIC [Concomitant]
     Active Substance: HERBALS\TURMERIC
  22. VITAMIN B COMPLEX [Concomitant]
     Active Substance: CYANOCOBALAMIN\DEXPANTHENOL\NIACINAMIDE\PYRIDOXINE HYDROCHLORIDE\RIBOFLAVIN 5^-PHOSPHATE SODIUM\THIAMINE HYDROCHLORIDE\VITAMIN B COMPLEX

REACTIONS (3)
  - Asthenia [None]
  - Total lung capacity decreased [None]
  - Muscular weakness [None]

NARRATIVE: CASE EVENT DATE: 20190301
